FAERS Safety Report 6144200-1 (Version None)
Quarter: 2009Q2

REPORT INFORMATION
  Report Type: 
  Country: None (occurrence: None)
  Receive Date: 20090406
  Receipt Date: 20090402
  Transmission Date: 20091009
  Serious: Yes (Other)
  Sender: FDA-Public Use
  Company Number: CN-ASTRAZENECA-2009AP02373

PATIENT
  Age: 32 Year
  Sex: Male

DRUGS (4)
  1. PULMICORT [Suspect]
     Indication: ASTHMA
     Route: 055
     Dates: start: 20040101
  2. PULMICORT [Suspect]
     Route: 055
  3. PULMICORT [Suspect]
     Route: 055
     Dates: end: 20060101
  4. OXIS TURBUHALER [Suspect]
     Indication: ASTHMA
     Route: 055
     Dates: start: 20040101, end: 20060101

REACTIONS (2)
  - ARTHRALGIA [None]
  - OSTEONECROSIS [None]
